FAERS Safety Report 21192777 (Version 5)
Quarter: 2022Q4

REPORT INFORMATION
  Report Type: Report from Study
  Country: US (occurrence: US)
  Receive Date: 20220810
  Receipt Date: 20221104
  Transmission Date: 20230113
  Serious: No
  Sender: FDA-Public Use
  Company Number: US-NOVARTISTESTPH-NVSC2022US180292

PATIENT
  Age: 70 Year
  Sex: Female

DRUGS (3)
  1. COSENTYX [Suspect]
     Active Substance: SECUKINUMAB
     Indication: Psoriasis
     Dosage: 150 MG, QW (QW FOR FIVE WEEKS AND THEN QMO)
     Route: 058
     Dates: start: 20220708
  2. COSENTYX [Suspect]
     Active Substance: SECUKINUMAB
     Indication: Psoriatic arthropathy
     Dosage: 150 MG
     Route: 065
  3. COSENTYX [Suspect]
     Active Substance: SECUKINUMAB
     Dosage: 300 MG, QW (QW FOR FIVE WEEKS AND THEN QMO)
     Route: 058
     Dates: start: 20220708

REACTIONS (5)
  - Psoriasis [Unknown]
  - Pruritus [Unknown]
  - Skin abrasion [Unknown]
  - Skin odour abnormal [Unknown]
  - Incorrect dosage administered [Unknown]

NARRATIVE: CASE EVENT DATE: 20220709
